FAERS Safety Report 13776085 (Version 1)
Quarter: 2017Q3

REPORT INFORMATION
  Report Type: Spontaneous
  Country: JP (occurrence: JP)
  Receive Date: 20170721
  Receipt Date: 20170721
  Transmission Date: 20171127
  Serious: Yes (Hospitalization)
  Sender: FDA-Public Use
  Company Number: JP-FRESENIUS KABI-FK201706201

PATIENT
  Age: 62 Year
  Sex: Female

DRUGS (3)
  1. GIMERACIL/OTERACIL/TEGAFUR [Suspect]
     Active Substance: GIMERACIL\OTERACIL\TEGAFUR
     Indication: LUNG ADENOCARCINOMA
     Route: 065
  2. NIVOLUMAB [Suspect]
     Active Substance: NIVOLUMAB
     Indication: LUNG ADENOCARCINOMA
  3. PACLITAXEL (MANUFACTURER UNKNOWN) [Suspect]
     Active Substance: PACLITAXEL
     Indication: LUNG ADENOCARCINOMA
     Route: 065

REACTIONS (2)
  - Interstitial lung disease [Not Recovered/Not Resolved]
  - Tumour pseudoprogression [Not Recovered/Not Resolved]
